FAERS Safety Report 21574657 (Version 2)
Quarter: 2022Q4

REPORT INFORMATION
  Report Type: Report from Study
  Country: US (occurrence: US)
  Receive Date: 20221109
  Receipt Date: 20221227
  Transmission Date: 20230112
  Serious: No
  Sender: FDA-Public Use
  Company Number: US-ABBVIE-4134521

PATIENT
  Sex: Female

DRUGS (3)
  1. HUMIRA [Suspect]
     Active Substance: ADALIMUMAB
     Indication: Hidradenitis
     Dosage: CITRATE FREE?DAY ONE?FORM STRENGTH: 80 MILLIGRAM
     Route: 058
  2. HUMIRA [Suspect]
     Active Substance: ADALIMUMAB
     Dosage: CITRATE FREE ?DAY 15?FORM STRENGTH: 80 MILLIGRAM
     Route: 058
  3. Pfizer BioNTech [Concomitant]
     Indication: COVID-19 immunisation
     Dosage: THIRD DOSE ONE IN ONCE
     Route: 030
     Dates: start: 20220914, end: 20220914

REACTIONS (2)
  - Rash [Recovering/Resolving]
  - Fungal skin infection [Recovering/Resolving]

NARRATIVE: CASE EVENT DATE: 20220101
